FAERS Safety Report 15488385 (Version 2)
Quarter: 2018Q4

REPORT INFORMATION
  Report Type: Spontaneous
  Country: US (occurrence: US)
  Receive Date: 20181011
  Receipt Date: 20181103
  Transmission Date: 20190205
  Serious: Yes (Hospitalization)
  Sender: FDA-Public Use
  Company Number: US-ABBVIE-18K-163-2484534-00

PATIENT
  Sex: Male
  Weight: 99.88 kg

DRUGS (3)
  1. VENCLEXTA [Suspect]
     Active Substance: VENETOCLAX
     Route: 048
     Dates: start: 20181026
  2. VENCLEXTA [Suspect]
     Active Substance: VENETOCLAX
     Route: 048
     Dates: start: 201808, end: 201809
  3. VENCLEXTA [Suspect]
     Active Substance: VENETOCLAX
     Indication: ACUTE MYELOID LEUKAEMIA
     Route: 048
     Dates: start: 2018, end: 201807

REACTIONS (9)
  - Intentional product use issue [Unknown]
  - Pityriasis rosea [Recovered/Resolved]
  - Pneumonia [Recovering/Resolving]
  - Acute myeloid leukaemia recurrent [Unknown]
  - Thrombosis [Recovering/Resolving]
  - Pain [Recovered/Resolved]
  - Pulmonary embolism [Recovering/Resolving]
  - Peripheral swelling [Recovering/Resolving]
  - Pruritus [Recovered/Resolved]

NARRATIVE: CASE EVENT DATE: 2018
